FAERS Safety Report 6187783-8 (Version None)
Quarter: 2009Q2

REPORT INFORMATION
  Report Type: 
  Country: None (occurrence: None)
  Receive Date: 20090513
  Receipt Date: 20090430
  Transmission Date: 20091009
  Serious: Yes (Other)
  Sender: FDA-Public Use
  Company Number: DE-RANBAXY-2009RR-23977

PATIENT
  Age: 46 Year
  Sex: Male
  Weight: 65 kg

DRUGS (2)
  1. CIPROFLOXACIN [Suspect]
     Indication: LIMB INJURY
     Dosage: 500 MG, UNK
     Route: 048
     Dates: start: 20090330, end: 20090405
  2. IBUPROFEN [Suspect]
     Indication: LIMB INJURY
     Dosage: UNK
     Route: 048
     Dates: start: 20090330, end: 20090405

REACTIONS (1)
  - HEPATITIS [None]
